FAERS Safety Report 9871392 (Version 1)
Quarter: 2014Q1

REPORT INFORMATION
  Report Type: Spontaneous
  Country: US (occurrence: US)
  Receive Date: 20140205
  Receipt Date: 20140205
  Transmission Date: 20141002
  Serious: Yes (Other)
  Sender: FDA-Public Use
  Company Number: US-ACTAVIS-2014-01423

PATIENT
  Sex: Female

DRUGS (1)
  1. FENTANYL-50 (WATSON LABORATORIES) [Suspect]
     Indication: PAIN
     Dosage: 50 MCG/HR, UNK
     Route: 062

REACTIONS (4)
  - Hypertension [Unknown]
  - Drug ineffective [Unknown]
  - Cold sweat [Unknown]
  - Drug withdrawal syndrome [Unknown]
